FAERS Safety Report 18774378 (Version 1)
Quarter: 2021Q1

REPORT INFORMATION
  Report Type: Report from Study
  Country: US (occurrence: US)
  Receive Date: 20210122
  Receipt Date: 20210122
  Transmission Date: 20210419
  Serious: Yes (Other)
  Sender: FDA-Public Use
  Company Number: US-MYLANLABS-2021M1003913

PATIENT

DRUGS (5)
  1. CRIZOTINIB [Suspect]
     Active Substance: CRIZOTINIB
     Dosage: 280 MILLIGRAM/SQ. METER, BID ON DAYS 1?21 OF 21 DAY CYCLE IN (AT DOSE LEVEL 3)
     Route: 048
  2. CYCLOPHOSPHAMIDE. [Suspect]
     Active Substance: CYCLOPHOSPHAMIDE
     Indication: NEOPLASM MALIGNANT
     Dosage: 250 MG/M2/DOSE ON DAYS 1?5 OF 21 DAY CYCLE (ADMINISTERED AT DOSE LEVEL 1,DOSE LEVEL 2,DOSE LEVEL 3)
     Route: 042
  3. TOPOTECAN [Suspect]
     Active Substance: TOPOTECAN HYDROCHLORIDE
     Indication: NEOPLASM MALIGNANT
     Dosage: 0.75 MG/M2/DOSE ON DAYS 1?5 OF 21 DAY CYCLE(ADMINISTERED AT DOSE LEVEL 1,DOSE LEVEL 2,DOSE LEVEL 3)
     Route: 042
  4. CRIZOTINIB [Suspect]
     Active Substance: CRIZOTINIB
     Dosage: 215 MILLIGRAM/SQ. METER, BID ON DAYS 1?21 OF 21 DAY CYCLE (AT DOSE LEVEL 2)
     Route: 048
  5. CRIZOTINIB [Suspect]
     Active Substance: CRIZOTINIB
     Indication: NEOPLASM MALIGNANT
     Dosage: 165 MILLIGRAM/SQ. METER, BID ON DAYS 1?21 OF 21 DAY CYCLE (AT DOSE LEVEL 1)
     Route: 048

REACTIONS (2)
  - Vision blurred [Unknown]
  - Diplopia [Unknown]
